FAERS Safety Report 8891322 (Version 1)
Quarter: 2012Q4

REPORT INFORMATION
  Report Type: Spontaneous
  Country: US (occurrence: None)
  Receive Date: 20121105
  Receipt Date: 20121105
  Transmission Date: 20130627
  Serious: Yes (Other)
  Sender: FDA-Public Use
  Company Number: None

PATIENT
  Age: 69 Year
  Sex: Female
  Weight: 74.84 kg

DRUGS (1)
  1. DEXAMETHASONE [Suspect]
     Indication: LOW PLATELETS
     Dates: start: 20121008, end: 20121011

REACTIONS (3)
  - Asthenia [None]
  - Dizziness [None]
  - Bone pain [None]
